FAERS Safety Report 25734036 (Version 1)
Quarter: 2025Q3

REPORT INFORMATION
  Report Type: Spontaneous
  Country: EU (occurrence: EU)
  Receive Date: 20250828
  Receipt Date: 20250828
  Transmission Date: 20251021
  Serious: Yes (Death)
  Sender: CATALYST PHARMA
  Company Number: EU-CATALYSTPHARMACEUTICALPARTNERS-DE-CATA-25-01245

PATIENT
  Age: 18 Year
  Sex: Male

DRUGS (1)
  1. AGAMREE [Suspect]
     Active Substance: VAMOROLONE
     Indication: Product used for unknown indication
     Route: 065
     Dates: start: 202405

REACTIONS (1)
  - Cardiac failure [Fatal]
